FAERS Safety Report 7214868-7 (Version None)
Quarter: 2011Q1

REPORT INFORMATION
  Report Type: 
  Country: None (occurrence: None)
  Receive Date: 20110107
  Receipt Date: 20100413
  Transmission Date: 20110831
  Serious: No
  Sender: FDA-Public Use
  Company Number: A0854811A

PATIENT
  Age: 66 Year
  Sex: Male

DRUGS (2)
  1. LOVAZA [Suspect]
     Dosage: 1G PER DAY
     Route: 048
     Dates: start: 20100315
  2. ASPIRIN [Concomitant]

REACTIONS (5)
  - MYALGIA [None]
  - DIARRHOEA [None]
  - PAIN [None]
  - INFLUENZA LIKE ILLNESS [None]
  - ASTHENIA [None]
